FAERS Safety Report 16049961 (Version 1)
Quarter: 2019Q1

REPORT INFORMATION
  Report Type: Report from Study
  Country: None (occurrence: QA)
  Receive Date: 20190308
  Receipt Date: 20190308
  Transmission Date: 20190418
  Serious: Yes (Hospitalization)
  Sender: FDA-Public Use
  Company Number: CA-ABBVIE-19K-028-2690690-00

PATIENT
  Sex: Male

DRUGS (2)
  1. HUMIRA [Suspect]
     Active Substance: ADALIMUMAB
     Indication: PSORIASIS
     Route: 058
     Dates: start: 20130616, end: 2018
  2. HUMIRA [Suspect]
     Active Substance: ADALIMUMAB
     Route: 058
     Dates: start: 20190216

REACTIONS (13)
  - Arthritis [Recovering/Resolving]
  - Productive cough [Recovered/Resolved]
  - Wound [Recovered/Resolved]
  - Inflammatory bowel disease [Recovered/Resolved]
  - Localised infection [Recovered/Resolved]
  - Irritable bowel syndrome [Unknown]
  - Skin laceration [Recovered/Resolved]
  - Discomfort [Unknown]
  - Psoriasis [Recovered/Resolved]
  - Sinus disorder [Recovered/Resolved]
  - Alopecia [Recovered/Resolved]
  - Oropharyngeal pain [Recovered/Resolved]
  - Joint swelling [Recovered/Resolved]

NARRATIVE: CASE EVENT DATE: 2018
